FAERS Safety Report 22229228 (Version 1)
Quarter: 2023Q2

REPORT INFORMATION
  Report Type: Spontaneous
  Country: US (occurrence: US)
  Receive Date: 20230419
  Receipt Date: 20230419
  Transmission Date: 20230722
  Serious: No
  Sender: FDA-Public Use
  Company Number: US-ALLERGAN-2215284US

PATIENT
  Sex: Female

DRUGS (8)
  1. RESTASIS [Suspect]
     Active Substance: CYCLOSPORINE
     Indication: Dry eye
     Dosage: UNK UNK, BID
  2. RESTASIS [Suspect]
     Active Substance: CYCLOSPORINE
     Indication: Eye irritation
  3. RESTASIS [Suspect]
     Active Substance: CYCLOSPORINE
     Indication: Foreign body sensation in eyes
  4. RESTASIS [Suspect]
     Active Substance: CYCLOSPORINE
     Indication: Eye pruritus
  5. SYSTANE COMPLETE [Concomitant]
     Active Substance: PROPYLENE GLYCOL
     Indication: Eye irritation
     Dosage: 3-4 TIMES A DAY
  6. SYSTANE COMPLETE [Concomitant]
     Active Substance: PROPYLENE GLYCOL
     Indication: Dry eye
  7. SYSTANE COMPLETE [Concomitant]
     Active Substance: PROPYLENE GLYCOL
     Indication: Foreign body sensation in eyes
  8. SYSTANE COMPLETE [Concomitant]
     Active Substance: PROPYLENE GLYCOL
     Indication: Eye pruritus

REACTIONS (6)
  - Multiple use of single-use product [Unknown]
  - Product use in unapproved indication [Unknown]
  - Eye irritation [Recovered/Resolved]
  - Eye pruritus [Recovered/Resolved]
  - Foreign body sensation in eyes [Recovered/Resolved]
  - Product complaint [Unknown]
